FAERS Safety Report 23331440 (Version 1)
Quarter: 2023Q4

REPORT INFORMATION
  Report Type: Spontaneous
  Country: IT (occurrence: IT)
  Receive Date: 20231222
  Receipt Date: 20231222
  Transmission Date: 20240109
  Serious: Yes (Other)
  Sender: FDA-Public Use
  Company Number: IT-BEH-2023166448

PATIENT
  Age: 23 Year
  Sex: Male

DRUGS (2)
  1. FIBRINOGEN HUMAN [Suspect]
     Active Substance: FIBRINOGEN HUMAN
     Indication: Factor I deficiency
     Dosage: UNK
     Route: 065
     Dates: start: 2022
  2. FIBRINOGEN HUMAN [Suspect]
     Active Substance: FIBRINOGEN HUMAN
     Indication: Abdominal injury
     Dosage: UNK
     Route: 065
     Dates: start: 2022

REACTIONS (6)
  - Portosplenomesenteric venous thrombosis [Recovering/Resolving]
  - Portal vein cavernous transformation [Unknown]
  - Gastrointestinal ischaemia [Unknown]
  - Shunt thrombosis [Not Recovered/Not Resolved]
  - Pulmonary embolism [Recovered/Resolved]
  - Visceral venous thrombosis [Not Recovered/Not Resolved]

NARRATIVE: CASE EVENT DATE: 20220101
